FAERS Safety Report 16851695 (Version 1)
Quarter: 2019Q3

REPORT INFORMATION
  Report Type: Spontaneous
  Country: PT (occurrence: FR)
  Receive Date: 20190925
  Receipt Date: 20190925
  Transmission Date: 20191005
  Serious: Yes (Other)
  Sender: FDA-Public Use
  Company Number: PT-SUNOVION-2019SUN003903

PATIENT

DRUGS (2)
  1. CIFLOX [Suspect]
     Active Substance: CIPROFLOXACIN
     Indication: URINARY TRACT INFECTION
     Dosage: 1000 MILLIGRAM, 1X / DAY
     Route: 048
     Dates: start: 20190812, end: 20190820
  2. ZEBINIX [Suspect]
     Active Substance: ESLICARBAZEPINE ACETATE
     Indication: EPILEPSY
     Dosage: 400 MILLIGRAM, 1X / DAY
     Route: 048
     Dates: start: 20190718, end: 20190820

REACTIONS (3)
  - Rash [Recovered/Resolved]
  - Eosinophil count increased [Recovered/Resolved]
  - Pruritus [Recovered/Resolved]

NARRATIVE: CASE EVENT DATE: 20190820
